FAERS Safety Report 8827404 (Version 1)
Quarter: 2012Q4

REPORT INFORMATION
  Report Type: 
  Country: US (occurrence: US)
  Receive Date: 20121005
  Receipt Date: 20121005
  Transmission Date: 20130627
  Serious: No
  Sender: FDA-Public Use
  Company Number: US-BRISTOL-MYERS SQUIBB COMPANY-16492779

PATIENT
  Age: 80 Year
  Sex: Female
  Weight: 73 kg

DRUGS (6)
  1. AVAPRO [Suspect]
     Indication: HYPERTENSION
     Route: 048
     Dates: start: 2007
  2. ALPRAZOLAM [Concomitant]
  3. ASPIRIN [Concomitant]
  4. HYDROCHLOROTHIAZIDE [Concomitant]
  5. MECLIZINE [Concomitant]
  6. METOPROLOL TARTRATE [Concomitant]

REACTIONS (2)
  - Pain in extremity [Unknown]
  - Oedema peripheral [Unknown]
